FAERS Safety Report 8241013-1 (Version None)
Quarter: 2012Q1

REPORT INFORMATION
  Report Type: 
  Country: None (occurrence: None)
  Receive Date: 20120328
  Receipt Date: 20120319
  Transmission Date: 20120608
  Serious: Yes (Hospitalization, Other)
  Sender: FDA-Public Use
  Company Number: US-MERCK-1108USA02947

PATIENT
  Age: 61 Year
  Sex: Female
  Weight: 58 kg

DRUGS (17)
  1. FOSAMAX [Suspect]
     Route: 048
     Dates: start: 19990707
  2. FOSAMAX [Suspect]
     Route: 048
  3. OMEGA-3 MARINE TRIGLYCERIDES [Concomitant]
     Route: 065
     Dates: start: 19990101
  4. VITAMIN E [Concomitant]
     Route: 065
     Dates: start: 19990101
  5. FOSAMAX [Suspect]
     Route: 048
     Dates: start: 20001001
  6. CALCIUM CITRATE [Concomitant]
     Indication: OSTEOPENIA
     Route: 065
     Dates: start: 19990101
  7. FOSAMAX [Suspect]
     Route: 048
     Dates: start: 19980101
  8. SYNTHROID [Concomitant]
     Indication: THYROID DISORDER
     Dosage: .75
     Route: 065
     Dates: start: 19820101
  9. VITAMINS (UNSPECIFIED) [Concomitant]
     Route: 065
     Dates: start: 19810101
  10. FOSAMAX [Suspect]
     Indication: OSTEOPENIA
     Route: 048
     Dates: start: 19990603, end: 20050601
  11. FOSAMAX [Suspect]
     Route: 048
     Dates: start: 20041117
  12. FOSAMAX [Suspect]
     Route: 048
  13. ELMIRON [Concomitant]
     Indication: CYSTITIS INTERSTITIAL
     Dosage: 3 PER DAY
     Route: 065
     Dates: start: 19870101
  14. CHONDROITIN SULFATE SODIUM AND GLUCOSAMINE SULFATE [Concomitant]
     Indication: ARTHROPATHY
     Route: 065
     Dates: start: 19990101
  15. VITAMIN B COMPLEX [Concomitant]
     Route: 065
     Dates: start: 19990101
  16. LISINOPRIL [Concomitant]
     Indication: HYPERTENSION
     Route: 065
     Dates: start: 19940101
  17. AMITRIPTYLINE HYDROCHLORIDE [Concomitant]
     Indication: CYSTITIS INTERSTITIAL
     Route: 065
     Dates: start: 19870101

REACTIONS (52)
  - DYSPNOEA [None]
  - OROPHARYNGEAL PAIN [None]
  - OESOPHAGEAL STENOSIS [None]
  - NEUROPATHY PERIPHERAL [None]
  - VAGINITIS BACTERIAL [None]
  - THYROID NEOPLASM [None]
  - FRACTURE NONUNION [None]
  - ANXIETY [None]
  - ARTHRITIS [None]
  - BLOOD CHOLESTEROL INCREASED [None]
  - CUBITAL TUNNEL SYNDROME [None]
  - DEPRESSION [None]
  - NEURALGIA [None]
  - NECK PAIN [None]
  - MELANOCYTIC NAEVUS [None]
  - INAPPROPRIATE SCHEDULE OF DRUG ADMINISTRATION [None]
  - SALPINGITIS [None]
  - HAEMORRHOIDAL HAEMORRHAGE [None]
  - ROTATOR CUFF SYNDROME [None]
  - CYST [None]
  - PAIN IN EXTREMITY [None]
  - SCIATICA [None]
  - HYPERCHOLESTEROLAEMIA [None]
  - CEREBROVASCULAR ACCIDENT [None]
  - SQUAMOUS CELL CARCINOMA [None]
  - DRUG INTOLERANCE [None]
  - CARPAL TUNNEL SYNDROME [None]
  - TOOTH DISORDER [None]
  - TENDONITIS [None]
  - BURSITIS [None]
  - RASH [None]
  - PRESYNCOPE [None]
  - INTERVERTEBRAL DISC DISORDER [None]
  - EPICONDYLITIS [None]
  - DYSPHAGIA [None]
  - DIVERTICULUM INTESTINAL [None]
  - DRY EYE [None]
  - GASTROOESOPHAGEAL REFLUX DISEASE [None]
  - BACK PAIN [None]
  - DIZZINESS [None]
  - HEADACHE [None]
  - FEMUR FRACTURE [None]
  - ADVERSE DRUG REACTION [None]
  - DERMATITIS ALLERGIC [None]
  - PELVIC ADHESIONS [None]
  - ARTHRALGIA [None]
  - HIATUS HERNIA [None]
  - DYSPEPSIA [None]
  - OVERDOSE [None]
  - DRUG INEFFECTIVE [None]
  - OSTEOARTHRITIS [None]
  - GASTRIC POLYPS [None]
